FAERS Safety Report 15125854 (Version 1)
Quarter: 2018Q3

REPORT INFORMATION
  Report Type: Spontaneous
  Country: US (occurrence: US)
  Receive Date: 20180710
  Receipt Date: 20180710
  Transmission Date: 20181010
  Serious: No
  Sender: FDA-Public Use
  Company Number: US-MYLANLABS-2018M1046606

PATIENT
  Sex: Female
  Weight: 71.66 kg

DRUGS (1)
  1. LIDOCAINE PATCH [Suspect]
     Active Substance: LIDOCAINE
     Indication: BACK PAIN
     Route: 003

REACTIONS (8)
  - Application site acne [Recovered/Resolved]
  - Application site pruritus [Unknown]
  - Application site mass [Unknown]
  - Application site hypersensitivity [Unknown]
  - Off label use [Unknown]
  - Product adhesion issue [Unknown]
  - Product quality issue [Unknown]
  - Application site erythema [None]
